FAERS Safety Report 16353333 (Version 1)
Quarter: 2019Q2

REPORT INFORMATION
  Report Type: Spontaneous
  Country: US (occurrence: US)
  Receive Date: 20190524
  Receipt Date: 20190524
  Transmission Date: 20190711
  Serious: No
  Sender: FDA-Public Use
  Company Number: US-ASTRAZENECA-2019SE76897

PATIENT
  Sex: Female

DRUGS (3)
  1. CARDIZEM [Suspect]
     Active Substance: DILTIAZEM HYDROCHLORIDE
     Dosage: UNKNOWN DOSAGE UNKNOWN FREQUENCY
     Route: 065
  2. NEXIUM [Suspect]
     Active Substance: ESOMEPRAZOLE MAGNESIUM
     Dosage: UNKNOWN DOSAGE UNKNOWN FREQUENCY
     Route: 048
  3. RECLAST [Suspect]
     Active Substance: ZOLEDRONIC ACID
     Dosage: UNKNOWN DOSAGE UNKNOWN FREQUENCY
     Route: 065

REACTIONS (1)
  - Drug hypersensitivity [Unknown]
